FAERS Safety Report 6790270-7 (Version None)
Quarter: 2010Q2

REPORT INFORMATION
  Report Type: 
  Country: None (occurrence: None)
  Receive Date: 20100624
  Receipt Date: 20100621
  Transmission Date: 20101027
  Serious: Yes (Life-Threatening, Hospitalization, Other)
  Sender: FDA-Public Use
  Company Number: CN-ASTRAZENECA-2010SE28805

PATIENT
  Age: 60 Year
  Sex: Female

DRUGS (1)
  1. NAROPIN [Suspect]
     Indication: ANAESTHESIA
     Dates: start: 20100526

REACTIONS (4)
  - BRAIN DEATH [None]
  - CARDIAC ARREST [None]
  - COMA [None]
  - RESPIRATORY ARREST [None]
